FAERS Safety Report 4478679-8 (Version None)
Quarter: 2004Q4

REPORT INFORMATION
  Report Type: 
  Country: None (occurrence: None)
  Receive Date: 20040923
  Receipt Date: 20040603
  Transmission Date: 20050328
  Serious: No
  Sender: FDA-Public Use
  Company Number: USA040669182

PATIENT
  Age: 86 Year
  Sex: Female
  Weight: 75 kg

DRUGS (1)
  1. FORTEO [Suspect]
     Indication: OSTEOPOROSIS
     Dosage: 20 UG DAY
     Dates: start: 20040520

REACTIONS (2)
  - INJECTION SITE DISCOLOURATION [None]
  - INJECTION SITE HAEMORRHAGE [None]
